FAERS Safety Report 19612982 (Version 1)
Quarter: 2021Q3

REPORT INFORMATION
  Report Type: Spontaneous
  Country: US (occurrence: US)
  Receive Date: 20210727
  Receipt Date: 20210727
  Transmission Date: 20211014
  Serious: Yes (Other)
  Sender: FDA-Public Use
  Company Number: US-ALIMERA SCIENCES LIMITED-US-A16013-21-000155

PATIENT

DRUGS (1)
  1. ILUVIEN [Suspect]
     Active Substance: FLUOCINOLONE ACETONIDE
     Indication: DIABETIC RETINAL OEDEMA
     Dosage: 0.25 MICROGRAM, QD?UNKNOWN EYE
     Route: 031

REACTIONS (3)
  - Glaucoma [Unknown]
  - Blindness [Unknown]
  - Glaucoma surgery [Recovered/Resolved]

NARRATIVE: CASE EVENT DATE: 2021
